FAERS Safety Report 4355285-7 (Version None)
Quarter: 2004Q2

REPORT INFORMATION
  Report Type: 
  Country: None (occurrence: None)
  Receive Date: 20040505
  Receipt Date: 30040423
  Transmission Date: 20050107
  Serious: Yes (Hospitalization)
  Sender: FDA-Public Use
  Company Number: 2004CG00794

PATIENT
  Age: 80 Year
  Sex: Male

DRUGS (4)
  1. CASODEX [Suspect]
     Indication: PROSTATE CANCER
     Dosage: 50 MG DAILY PO
     Route: 048
     Dates: start: 20020401, end: 20040401
  2. MOPRAL [Concomitant]
  3. AMLODIPINE [Concomitant]
  4. NITROGLYCERIN [Concomitant]

REACTIONS (3)
  - PERICARDIAL DISEASE [None]
  - PLEURAL DISORDER [None]
  - SYSTEMIC LUPUS ERYTHEMATOSUS [None]
